FAERS Safety Report 8950904 (Version 2)
Quarter: 2012Q4

REPORT INFORMATION
  Report Type: 
  Country: ES (occurrence: ES)
  Receive Date: 20121207
  Receipt Date: 20121213
  Transmission Date: 20130627
  Serious: Yes (Other)
  Sender: FDA-Public Use
  Company Number: PHHY2012ES112167

PATIENT
  Sex: Male

DRUGS (2)
  1. ZOMETA [Suspect]
     Indication: MULTIPLE MYELOMA
     Dosage: UNK UKN, UNK
  2. ZOMETA [Suspect]
     Dosage: UNK UKN, UNK

REACTIONS (2)
  - Osteonecrosis of jaw [Not Recovered/Not Resolved]
  - Fistula [Unknown]
